FAERS Safety Report 9859665 (Version 1)
Quarter: 2014Q1

REPORT INFORMATION
  Report Type: Spontaneous
  Country: US (occurrence: US)
  Receive Date: 20140131
  Receipt Date: 20140131
  Transmission Date: 20141002
  Serious: Yes (Hospitalization)
  Sender: FDA-Public Use
  Company Number: US-GLAXOSMITHKLINE-A1058073A

PATIENT
  Age: 26 Year
  Sex: Male

DRUGS (3)
  1. LAMICTAL [Suspect]
     Indication: GRAND MAL CONVULSION
     Dosage: 800MG VARIABLE DOSE
     Route: 048
     Dates: start: 2012
  2. TOPOMAX [Concomitant]
  3. RANITIDINE [Concomitant]

REACTIONS (4)
  - Convulsion [Recovering/Resolving]
  - Prescribed overdose [Unknown]
  - Drug ineffective [Unknown]
  - Tongue biting [Unknown]
